FAERS Safety Report 15669385 (Version 2)
Quarter: 2019Q1

REPORT INFORMATION
  Report Type: Other
  Country: IT (occurrence: IT)
  Receive Date: 20181129
  Receipt Date: 20190214
  Transmission Date: 20190417
  Serious: Yes (Other)
  Sender: FDA-Public Use
  Company Number: IT-CELLTRION INC.-2018IT024069

PATIENT

DRUGS (3)
  1. REMSIMA [Suspect]
     Active Substance: INFLIXIMAB
     Indication: ANKYLOSING SPONDYLITIS
     Dosage: 300 MG
     Route: 042
     Dates: start: 20160320, end: 20161102
  2. NATECAL D3 600 MG + 400 U.I. COMPRESSE MASTICABILI [Concomitant]
     Dosage: UNK
     Route: 048
  3. KARVEA [Concomitant]
     Active Substance: IRBESARTAN
     Route: 048

REACTIONS (1)
  - Basal cell carcinoma [Recovered/Resolved]

NARRATIVE: CASE EVENT DATE: 20161013
